FAERS Safety Report 19241443 (Version 1)
Quarter: 2021Q2

REPORT INFORMATION
  Report Type: Spontaneous
  Country: US (occurrence: US)
  Receive Date: 20210511
  Receipt Date: 20210511
  Transmission Date: 20210717
  Serious: Yes (Disabling)
  Sender: FDA-Public Use
  Company Number: None

PATIENT
  Age: 65 Year
  Sex: Male
  Weight: 58.5 kg

DRUGS (5)
  1. CURCUMIN [Concomitant]
     Active Substance: CURCUMIN
  2. MONTELUKAST SODIUM. [Suspect]
     Active Substance: MONTELUKAST SODIUM
     Indication: SEASONAL ALLERGY
  3. MONTELUKAST SODIUM. [Suspect]
     Active Substance: MONTELUKAST SODIUM
     Indication: ASTHMA
  4. PROBIOTIC [Concomitant]
     Active Substance: PROBIOTICS NOS
  5. VIT D [Concomitant]
     Active Substance: VITAMIN D NOS

REACTIONS (7)
  - Agitation [None]
  - Anxiety [None]
  - Cognitive disorder [None]
  - Confusional state [None]
  - Memory impairment [None]
  - Amnesia [None]
  - Loss of personal independence in daily activities [None]

NARRATIVE: CASE EVENT DATE: 20180501
